FAERS Safety Report 8903585 (Version 1)
Quarter: 2012Q4

REPORT INFORMATION
  Report Type: 
  Country: US (occurrence: US)
  Receive Date: 20121113
  Receipt Date: 20121113
  Transmission Date: 20130627
  Serious: Yes (Other)
  Sender: FDA-Public Use
  Company Number: US-SANOFI-AVENTIS-2012SA081231

PATIENT
  Sex: Male

DRUGS (4)
  1. LOVENOX [Suspect]
     Indication: CLOT BLOOD
     Route: 065
     Dates: start: 201208
  2. WARFARIN SODIUM [Suspect]
     Route: 065
     Dates: start: 201208, end: 201209
  3. KEFLEX [Concomitant]
  4. ANTIBIOTICS [Concomitant]

REACTIONS (13)
  - Muscle rupture [Not Recovered/Not Resolved]
  - Pain in extremity [Not Recovered/Not Resolved]
  - Muscle swelling [Not Recovered/Not Resolved]
  - Muscle haemorrhage [Unknown]
  - Oedema peripheral [Unknown]
  - Pain [Unknown]
  - Nerve injury [Unknown]
  - Diarrhoea [Not Recovered/Not Resolved]
  - Epistaxis [Not Recovered/Not Resolved]
  - Injection site bruising [Not Recovered/Not Resolved]
  - Injection site pain [Not Recovered/Not Resolved]
  - Contusion [Recovered/Resolved]
  - Gingival bleeding [Recovered/Resolved]
